FAERS Safety Report 19262961 (Version 1)
Quarter: 2021Q2

REPORT INFORMATION
  Report Type: Report from Study
  Country: None (occurrence: US)
  Receive Date: 20210517
  Receipt Date: 20210517
  Transmission Date: 20210717
  Serious: Yes (Hospitalization, Other)
  Sender: FDA-Public Use
  Company Number: US-ABBVIE-21K-163-3901218-00

PATIENT
  Age: 70 Year
  Sex: Male

DRUGS (1)
  1. HUMIRA [Suspect]
     Active Substance: ADALIMUMAB
     Indication: CROHN^S DISEASE
     Dosage: CITRATE FREE
     Route: 058
     Dates: end: 202104

REACTIONS (5)
  - Spinal column injury [Not Recovered/Not Resolved]
  - Concussion [Not Recovered/Not Resolved]
  - Fall [Not Recovered/Not Resolved]
  - Dementia [Not Recovered/Not Resolved]
  - Face injury [Not Recovered/Not Resolved]

NARRATIVE: CASE EVENT DATE: 20180623
